FAERS Safety Report 10897361 (Version 1)
Quarter: 2015Q1

REPORT INFORMATION
  Report Type: Spontaneous
  Country: US (occurrence: None)
  Receive Date: 20150302
  Receipt Date: 20150302
  Transmission Date: 20150721
  Serious: Yes (Other)
  Sender: FDA-Public Use
  Company Number: None

PATIENT
  Age: 51 Year
  Sex: Male
  Weight: 74.39 kg

DRUGS (14)
  1. BABY ASPRIN [Concomitant]
  2. CLOPIDOGREL [Concomitant]
     Active Substance: CLOPIDOGREL BISULFATE
  3. MAGNESIUM [Concomitant]
     Active Substance: MAGNESIUM
  4. ATORVASTATIN 80 MG [Suspect]
     Active Substance: ATORVASTATIN
     Indication: CORONARY ARTERIAL STENT INSERTION
     Dosage: 1 EA 80 MG, ONCE DAILY, TAKEN BY MOUTH
     Route: 048
     Dates: start: 20141214
  5. CANNABIS [Concomitant]
     Active Substance: CANNABIS SATIVA SUBSP. INDICA TOP
  6. NIACIN. [Concomitant]
     Active Substance: NIACIN
  7. VITAMIN C [Concomitant]
     Active Substance: ASCORBIC ACID
  8. D3 [Concomitant]
     Active Substance: 25-HYDROXYCHOLECALCIFEROL, 5-TRANS-
  9. KRILL [Concomitant]
  10. COQ10 [Concomitant]
     Active Substance: UBIDECARENONE
  11. METOPROLOL [Concomitant]
     Active Substance: METOPROLOL
  12. ATORVASTATIN 80 MG [Suspect]
     Active Substance: ATORVASTATIN
     Indication: MYOCARDIAL INFARCTION
     Dosage: 1 EA 80 MG, ONCE DAILY, TAKEN BY MOUTH
     Route: 048
     Dates: start: 20141214
  13. LISINOPRIL. [Concomitant]
     Active Substance: LISINOPRIL
  14. MULTI-VITAMIN [Concomitant]
     Active Substance: .ALPHA.-TOCOPHEROL ACETATE, DL-\ASCORBIC ACID\CYANOCOBALAMIN\FLUORIDE ION\FOLIC ACID\NIACIN\PYRIDOXINE\RIBOFLAVIN\THIAMINE\VITAMIN A\VITAMIN D

REACTIONS (5)
  - Back pain [None]
  - Pain in extremity [None]
  - Pain [None]
  - Myalgia [None]
  - Bedridden [None]

NARRATIVE: CASE EVENT DATE: 20150228
